FAERS Safety Report 16197489 (Version 1)
Quarter: 2019Q2

REPORT INFORMATION
  Report Type: Spontaneous
  Country: US (occurrence: US)
  Receive Date: 20190413
  Receipt Date: 20190413
  Transmission Date: 20190711
  Serious: Yes (Other)
  Sender: FDA-Public Use
  Company Number: None

PATIENT
  Age: 63 Year
  Sex: Female
  Weight: 129.6 kg

DRUGS (1)
  1. TRIAMCINOLONE ACETONIDE INJECTION [Suspect]
     Active Substance: TRIAMCINOLONE ACETONIDE
     Indication: CYST
     Route: 008
     Dates: start: 20190103, end: 20190325

REACTIONS (3)
  - Culture wound positive [None]
  - Peptostreptococcus infection [None]
  - Injection site infection [None]

NARRATIVE: CASE EVENT DATE: 20190310
